FAERS Safety Report 11866811 (Version 3)
Quarter: 2016Q1

REPORT INFORMATION
  Report Type: Spontaneous
  Country: CN (occurrence: CN)
  Receive Date: 20151224
  Receipt Date: 20160210
  Transmission Date: 20160526
  Serious: Yes (Hospitalization)
  Sender: FDA-Public Use
  Company Number: CN-SUN PHARMACEUTICAL INDUSTRIES LTD-2015RR-108515

PATIENT

DRUGS (15)
  1. MORPHINE [Suspect]
     Active Substance: MORPHINE
     Indication: BREAKTHROUGH PAIN
     Dosage: 20 MG, Q4H
     Route: 048
  2. MORPHINE [Suspect]
     Active Substance: MORPHINE
     Dosage: 40 MG, UNK
     Route: 048
  3. FAMOTIDINE. [Suspect]
     Active Substance: FAMOTIDINE
     Indication: PRODUCT USED FOR UNKNOWN INDICATION
     Dosage: UNK
     Route: 048
  4. MOSAPRIDE CITRATE [Suspect]
     Active Substance: MOSAPRIDE CITRATE
     Indication: PRODUCT USED FOR UNKNOWN INDICATION
     Dosage: UNK
     Route: 048
  5. MORPHINE [Suspect]
     Active Substance: MORPHINE
     Indication: BREAKTHROUGH PAIN
     Dosage: 10 MG, QID
     Route: 033
  6. OXYCODONE HYDROCHLORIDE, PARACETAMOL [Concomitant]
     Indication: NEURALGIA
     Route: 048
  7. FENTANYL. [Concomitant]
     Active Substance: FENTANYL
     Indication: BREAKTHROUGH PAIN
     Dosage: 100 ?G, UNK
     Route: 062
  8. CARBAMAZEPINE. [Suspect]
     Active Substance: CARBAMAZEPINE
     Indication: BREAKTHROUGH PAIN
     Dosage: 0.2 G, BID
     Route: 048
  9. MORPHINE [Suspect]
     Active Substance: MORPHINE
     Dosage: 10 MG MORPHINE INTRAPERITONEALLY EVERY 1 - 2 HOURS
     Route: 033
  10. FENTANYL. [Concomitant]
     Active Substance: FENTANYL
     Indication: BREAKTHROUGH PAIN
     Dosage: 150 ?G, UNK
     Route: 062
  11. GABAPENTIN. [Concomitant]
     Active Substance: GABAPENTIN
     Indication: BREAKTHROUGH PAIN
     Dosage: 0.3 G, TID
     Route: 065
  12. MORPHINE [Suspect]
     Active Substance: MORPHINE
     Route: 048
  13. TRAMADOL. [Concomitant]
     Active Substance: TRAMADOL
     Indication: NEURALGIA
     Dosage: 100 MG, BID
     Route: 048
  14. DULOXETINE. [Concomitant]
     Active Substance: DULOXETINE
     Indication: BREAKTHROUGH PAIN
     Dosage: DULOXETINE ENTERIC CAPSULE (120 MG) ONCE EACH NIGHT
     Route: 048
  15. PREGABALIN. [Concomitant]
     Active Substance: PREGABALIN
     Indication: NEURALGIA
     Route: 065

REACTIONS (2)
  - Hyperaesthesia [Recovered/Resolved]
  - Hepatic function abnormal [Recovering/Resolving]

NARRATIVE: CASE EVENT DATE: 20150110
